FAERS Safety Report 14720783 (Version 4)
Quarter: 2018Q2

REPORT INFORMATION
  Report Type: Spontaneous
  Country: US (occurrence: US)
  Receive Date: 20180405
  Receipt Date: 20180521
  Transmission Date: 20180711
  Serious: Yes (Other)
  Sender: FDA-Public Use
  Company Number: US-PFIZER INC-2018137894

PATIENT
  Age: 54 Year
  Sex: Female

DRUGS (1)
  1. XELJANZ XR [Suspect]
     Active Substance: TOFACITINIB CITRATE
     Indication: RHEUMATOID ARTHRITIS
     Dosage: 11 MG, 1X/DAY
     Dates: start: 20171129, end: 20180301

REACTIONS (8)
  - Hepatomegaly [Not Recovered/Not Resolved]
  - Hepatic enzyme increased [Not Recovered/Not Resolved]
  - Infection [Unknown]
  - Eye abscess [Unknown]
  - Malaise [Unknown]
  - Dyspnoea [Unknown]
  - Hepatic steatosis [Not Recovered/Not Resolved]
  - Pyrexia [Not Recovered/Not Resolved]
